FAERS Safety Report 20232616 (Version 4)
Quarter: 2022Q4

REPORT INFORMATION
  Report Type: Report from Study
  Country: JP (occurrence: None)
  Receive Date: 20211227
  Receipt Date: 20221110
  Transmission Date: 20230113
  Serious: Yes (Death)
  Sender: FDA-Public Use
  Company Number: JP-ROCHE-2988351

PATIENT
  Age: 66 Year
  Sex: Male
  Weight: 68 kg

DRUGS (9)
  1. RITUXIMAB [Suspect]
     Active Substance: RITUXIMAB
     Indication: Chronic lymphocytic leukaemia
     Dosage: LAST DOSE (375 MG/M2) PRIOR TO EVENT ONSET ON 09/DEC/2021
     Route: 041
     Dates: start: 20211209
  2. BENDAMUSTINE [Suspect]
     Active Substance: BENDAMUSTINE
     Indication: Chronic lymphocytic leukaemia
     Dosage: ON 10/DEC/2021, RECEIVED THE LAST DOSE (90 MG/M2) PRIOR TO ONSET OF EVENT
     Route: 042
     Dates: start: 20211209
  3. GRANISETRON HYDROCHLORIDE [Concomitant]
     Active Substance: GRANISETRON HYDROCHLORIDE
     Dates: start: 20211209, end: 20211210
  4. DIPHENHYDRAMINE HYDROCHLORIDE [Concomitant]
     Active Substance: DIPHENHYDRAMINE HYDROCHLORIDE
     Dates: start: 20211209, end: 20211209
  5. HYDROCORTISONE SODIUM SUCCINATE [Concomitant]
     Active Substance: HYDROCORTISONE SODIUM SUCCINATE
     Dates: start: 20211209, end: 20211209
  6. FEBUXOSTAT [Concomitant]
     Active Substance: FEBUXOSTAT
     Dates: start: 20211208, end: 20211208
  7. RASBURICASE [Concomitant]
     Active Substance: RASBURICASE
     Dates: start: 20211209, end: 20211211
  8. ACETAMINOPHEN [Concomitant]
     Active Substance: ACETAMINOPHEN
     Dates: start: 20211209, end: 20211209
  9. MAGNESIUM OXIDE [Concomitant]
     Active Substance: MAGNESIUM OXIDE
     Dates: start: 20211212, end: 20211213

REACTIONS (1)
  - Tumour lysis syndrome [Fatal]

NARRATIVE: CASE EVENT DATE: 20211213
